FAERS Safety Report 15145024 (Version 4)
Quarter: 2018Q3

REPORT INFORMATION
  Report Type: Spontaneous
  Country: NL (occurrence: NL)
  Receive Date: 20180713
  Receipt Date: 20180827
  Transmission Date: 20181010
  Serious: Yes (Death, Other)
  Sender: FDA-Public Use
  Company Number: PHHY2018NL015886

PATIENT
  Age: 6 Year
  Sex: Female

DRUGS (13)
  1. CARBOPLATIN. [Suspect]
     Active Substance: CARBOPLATIN
     Indication: NEPHROBLASTOMA
     Dosage: UNK
     Route: 065
  2. IFOSFAMIDE. [Suspect]
     Active Substance: IFOSFAMIDE
     Indication: NEPHROBLASTOMA
  3. VINCRISTINE [Suspect]
     Active Substance: VINCRISTINE
     Indication: NEPHROBLASTOMA
     Dosage: FIRST LINE TREATMENT
     Route: 065
  4. IFOSFAMIDE. [Suspect]
     Active Substance: IFOSFAMIDE
     Indication: NEPHROBLASTOMA
  5. IFOSFAMIDE. [Suspect]
     Active Substance: IFOSFAMIDE
     Indication: NEPHROBLASTOMA
  6. ETOPOSIDE. [Suspect]
     Active Substance: ETOPOSIDE
     Dosage: UNK
     Route: 065
  7. ACTINOMYCIN D [Suspect]
     Active Substance: DACTINOMYCIN
     Indication: RECURRENT CANCER
     Dosage: FIRST LINE TREATMENT
     Route: 065
  8. IRINOTECAN [Suspect]
     Active Substance: IRINOTECAN
     Indication: NEPHROBLASTOMA
     Dosage: 15 MG/M2, UNK
     Route: 065
  9. ETOPOSIDE. [Suspect]
     Active Substance: ETOPOSIDE
     Indication: NEPHROBLASTOMA
  10. ETOPOSIDE. [Suspect]
     Active Substance: ETOPOSIDE
     Indication: NEPHROBLASTOMA
  11. IFOSFAMIDE. [Suspect]
     Active Substance: IFOSFAMIDE
     Indication: NEPHROBLASTOMA
     Dosage: UNK
     Route: 065
  12. ACTINOMYCIN D [Suspect]
     Active Substance: DACTINOMYCIN
     Indication: NEPHROBLASTOMA
     Dosage: PREOPERATIVE TREATMENT
     Route: 065
  13. VINCRISTINE [Suspect]
     Active Substance: VINCRISTINE
     Indication: NEPHROBLASTOMA

REACTIONS (7)
  - Product use in unapproved indication [Fatal]
  - Disease progression [Fatal]
  - Malignant neoplasm progression [Fatal]
  - Metastatic neoplasm [Fatal]
  - Disease recurrence [Fatal]
  - Nephroblastoma [Fatal]
  - Metastasis [Fatal]
